FAERS Safety Report 6487260-0 (Version None)
Quarter: 2009Q4

REPORT INFORMATION
  Report Type: 
  Country: None (occurrence: None)
  Receive Date: 20091210
  Receipt Date: 20091207
  Transmission Date: 20100525
  Serious: Yes (Hospitalization)
  Sender: FDA-Public Use
  Company Number: BE-SANOFI-AVENTIS-200916745EU

PATIENT
  Sex: Female
  Weight: 80 kg

DRUGS (10)
  1. CLEXANE [Suspect]
     Route: 058
     Dates: start: 20090906, end: 20091023
  2. ACETYLCYSTEINE [Concomitant]
     Indication: BRONCHIAL OBSTRUCTION
  3. BUMEX [Concomitant]
     Indication: HYPERTENSION
     Route: 048
  4. BUMEX [Concomitant]
     Indication: OEDEMA
     Route: 048
  5. COVERSYL /BEL/ [Concomitant]
     Indication: HYPERTENSION
     Route: 048
  6. ACTRAPID MC [Concomitant]
     Route: 058
  7. DAFLON [Concomitant]
     Indication: OEDEMA
     Route: 048
  8. ASPEGIC 1000 [Concomitant]
     Route: 048
  9. EMCONCOR /BEL/ [Concomitant]
     Indication: HYPERTENSION
     Route: 048
  10. CRESTOR [Concomitant]
     Route: 048

REACTIONS (2)
  - OEDEMA [None]
  - PEMPHIGOID [None]
